FAERS Safety Report 7295256-4 (Version None)
Quarter: 2011Q1

REPORT INFORMATION
  Report Type: 
  Country: None (occurrence: None)
  Receive Date: 20110216
  Receipt Date: 20110209
  Transmission Date: 20110831
  Serious: Yes (Hospitalization)
  Sender: FDA-Public Use
  Company Number: US-JNJFOC-20110203891

PATIENT
  Sex: Female
  Weight: 35.7 kg

DRUGS (7)
  1. PROBIOTICS [Concomitant]
  2. MERCAPTOPURINE [Concomitant]
  3. TRAMADOL [Concomitant]
  4. HUMIRA [Concomitant]
  5. CIMZIA [Concomitant]
  6. INFLIXIMAB, RECOMBINANT [Suspect]
     Indication: CROHN'S DISEASE
     Route: 042
  7. CITALOPRAM [Concomitant]

REACTIONS (1)
  - LARGE INTESTINE PERFORATION [None]
